FAERS Safety Report 9415224 (Version 1)
Quarter: 2013Q3

REPORT INFORMATION
  Report Type: Spontaneous
  Country: US (occurrence: US)
  Receive Date: 20130723
  Receipt Date: 20130723
  Transmission Date: 20140515
  Serious: No
  Sender: FDA-Public Use
  Company Number: US-MYLANLABS-2013S1007656

PATIENT
  Age: 52 Year
  Sex: Female
  Weight: 61.24 kg

DRUGS (3)
  1. RIZATRIPTAN BENZOATE ORALLY DISINTEGRATING TABLETS [Suspect]
     Indication: MIGRAINE
     Route: 048
     Dates: start: 201303
  2. RITALIN [Concomitant]
     Indication: ATTENTION DEFICIT/HYPERACTIVITY DISORDER
  3. EXCEDRIN [Concomitant]
     Indication: HEADACHE

REACTIONS (2)
  - Drug effect decreased [Not Recovered/Not Resolved]
  - Migraine [Not Recovered/Not Resolved]
